FAERS Safety Report 7367042-8 (Version None)
Quarter: 2011Q1

REPORT INFORMATION
  Report Type: 
  Country: None (occurrence: None)
  Receive Date: 20110322
  Receipt Date: 20110315
  Transmission Date: 20110831
  Serious: Yes (Hospitalization)
  Sender: FDA-Public Use
  Company Number: US-AMGEN-USASP2011014274

PATIENT
  Age: 58 Year
  Sex: Male

DRUGS (1)
  1. ENBREL [Suspect]
     Indication: RHEUMATOID ARTHRITIS
     Dosage: 25 MG, QWK
     Dates: start: 20010920

REACTIONS (5)
  - RHEUMATOID ARTHRITIS [None]
  - SINUSITIS [None]
  - JOINT INJURY [None]
  - SINUS OPERATION [None]
  - PNEUMONIA [None]
